FAERS Safety Report 6864124-1 (Version None)
Quarter: 2010Q3

REPORT INFORMATION
  Report Type: 
  Country: None (occurrence: None)
  Receive Date: 20100720
  Receipt Date: 20100706
  Transmission Date: 20110219
  Serious: Yes (Death)
  Sender: FDA-Public Use
  Company Number: A-NJ2010-37963

PATIENT
  Age: 11 Month
  Sex: Male

DRUGS (1)
  1. TRACLEER [Suspect]
     Indication: PULMONARY ARTERIAL HYPERTENSION
     Dosage: 15 MG, BID, ORAL
     Route: 048
     Dates: start: 20100407

REACTIONS (1)
  - SEPSIS [None]
